FAERS Safety Report 7731860-4 (Version None)
Quarter: 2011Q3

REPORT INFORMATION
  Report Type: 
  Country: None (occurrence: None)
  Receive Date: 20110906
  Receipt Date: 20110901
  Transmission Date: 20111222
  Serious: Yes (Death)
  Sender: FDA-Public Use
  Company Number: VE-PFIZER INC-2011198790

PATIENT
  Age: 72 Year
  Sex: Male

DRUGS (1)
  1. CADUET [Suspect]

REACTIONS (1)
  - CARDIO-RESPIRATORY ARREST [None]
